FAERS Safety Report 19519997 (Version 1)
Quarter: 2021Q3

REPORT INFORMATION
  Report Type: Spontaneous
  Country: US (occurrence: US)
  Receive Date: 20210712
  Receipt Date: 20210712
  Transmission Date: 20211014
  Serious: Yes (Other)
  Sender: FDA-Public Use
  Company Number: US-APOTEX-2021AP017002

PATIENT
  Sex: Male

DRUGS (4)
  1. 6?MP [Suspect]
     Active Substance: MERCAPTOPURINE
     Dosage: 20 MILLIGRAM/SQ. METER, QD (350 MG/WEEK)
     Route: 065
  2. 6?MP [Suspect]
     Active Substance: MERCAPTOPURINE
     Indication: ACUTE LYMPHOCYTIC LEUKAEMIA
     Dosage: 78 MILLIGRAM/SQ. METER, QD
     Route: 065
  3. ALLOPURINOL. [Suspect]
     Active Substance: ALLOPURINOL
     Indication: DRUG TOXICITY PROPHYLAXIS
     Dosage: 100 MILLIGRAM, QD (39 MG/M2/DAY)
     Route: 065
  4. METHOTREXATE. [Concomitant]
     Active Substance: METHOTREXATE
     Indication: PRODUCT USED FOR UNKNOWN INDICATION
     Dosage: UNK
     Route: 065

REACTIONS (3)
  - Toxicity to various agents [Unknown]
  - Thrombocytopenia [Unknown]
  - Splenomegaly [Unknown]
